FAERS Safety Report 9632194 (Version 2)
Quarter: 2013Q4

REPORT INFORMATION
  Report Type: Report from Study
  Country: DE (occurrence: DE)
  Receive Date: 20131018
  Receipt Date: 20131018
  Transmission Date: 20140711
  Serious: Yes (Hospitalization, Other)
  Sender: FDA-Public Use
  Company Number: DE-ABBVIE-13P-062-1128399-00

PATIENT
  Age: 57 Year
  Sex: Female

DRUGS (14)
  1. HUMIRA [Suspect]
     Indication: RHEUMATOID ARTHRITIS
     Route: 058
     Dates: start: 201202, end: 20121210
  2. AMLODIPIN [Concomitant]
     Indication: PRODUCT USED FOR UNKNOWN INDICATION
  3. VALSARTAN [Concomitant]
     Indication: PRODUCT USED FOR UNKNOWN INDICATION
  4. LEVOTHYROXINE [Concomitant]
     Indication: PRODUCT USED FOR UNKNOWN INDICATION
  5. FUROSEMIDE [Concomitant]
     Indication: PRODUCT USED FOR UNKNOWN INDICATION
  6. HYDROCHLOROTHIAZIDE [Concomitant]
     Indication: PRODUCT USED FOR UNKNOWN INDICATION
  7. PREDNISOLONE [Concomitant]
     Indication: PRODUCT USED FOR UNKNOWN INDICATION
  8. TRAMADOL [Concomitant]
     Indication: PRODUCT USED FOR UNKNOWN INDICATION
  9. FORADIL [Concomitant]
     Indication: PRODUCT USED FOR UNKNOWN INDICATION
  10. SPIRIVA [Concomitant]
     Indication: PRODUCT USED FOR UNKNOWN INDICATION
  11. BUDESONIDE [Concomitant]
     Indication: PRODUCT USED FOR UNKNOWN INDICATION
  12. NITRENDIPINE [Concomitant]
     Indication: PRODUCT USED FOR UNKNOWN INDICATION
  13. INDOMETACIN [Concomitant]
     Indication: PRODUCT USED FOR UNKNOWN INDICATION
  14. CALCIUM [Concomitant]
     Indication: PRODUCT USED FOR UNKNOWN INDICATION

REACTIONS (14)
  - Pneumonia [Recovered/Resolved]
  - Dehydration [Recovering/Resolving]
  - Renal failure [Recovering/Resolving]
  - Hypokalaemia [Recovering/Resolving]
  - Respiratory failure [Recovering/Resolving]
  - Obstructive airways disorder [Recovering/Resolving]
  - Dyspnoea [Recovered/Resolved]
  - Nasopharyngitis [Recovered/Resolved]
  - Asthenia [Recovered/Resolved]
  - Weight decreased [Not Recovered/Not Resolved]
  - General physical health deterioration [Recovered/Resolved]
  - Hypoxia [Not Recovered/Not Resolved]
  - Hypercapnia [Not Recovered/Not Resolved]
  - Chronic obstructive pulmonary disease [Recovering/Resolving]
